FAERS Safety Report 15052787 (Version 3)
Quarter: 2018Q4

REPORT INFORMATION
  Report Type: Spontaneous
  Country: US (occurrence: US)
  Receive Date: 20180622
  Receipt Date: 20181228
  Transmission Date: 20190204
  Serious: Yes (Other)
  Sender: FDA-Public Use
  Company Number: US-PFIZER INC-2018249077

PATIENT
  Age: 71 Year
  Sex: Male
  Weight: 91 kg

DRUGS (4)
  1. LIDOCAINE HCL [Interacting]
     Active Substance: LIDOCAINE HYDROCHLORIDE
     Dosage: 4 MG/MIN
     Route: 041
  2. LIDOCAINE HCL [Suspect]
     Active Substance: LIDOCAINE HYDROCHLORIDE
     Indication: VENTRICULAR ARRHYTHMIA
     Dosage: 90 MG, SINGLE (1 MG/KG) ROUGHLY 30 MINUTES FOLLOWING ED PRESENTATION)
     Route: 040
  3. LIDOCAINE HCL [Interacting]
     Active Substance: LIDOCAINE HYDROCHLORIDE
     Dosage: 2 MG/MIN
     Route: 041
  4. MEXILETINE [Interacting]
     Active Substance: MEXILETINE
     Indication: VENTRICULAR ARRHYTHMIA
     Dosage: 150 MG, 3X/DAY, EVERY 8 HOURS

REACTIONS (8)
  - Toxicity to various agents [Unknown]
  - Drug interaction [Unknown]
  - Confusional state [Unknown]
  - Electroencephalogram abnormal [Unknown]
  - Drug level above therapeutic [Recovered/Resolved]
  - Tremor [Unknown]
  - Dysarthria [Unknown]
  - Mental status changes [Recovering/Resolving]
